FAERS Safety Report 7645053-2 (Version None)
Quarter: 2011Q3

REPORT INFORMATION
  Report Type: 
  Country: None (occurrence: None)
  Receive Date: 20110729
  Receipt Date: 20110722
  Transmission Date: 20111222
  Serious: Yes (Other)
  Sender: FDA-Public Use
  Company Number: HR-GLAXOSMITHKLINE-B0735930A

PATIENT
  Age: 78 Year
  Sex: Female

DRUGS (2)
  1. SIMVASTATIN [Concomitant]
     Dosage: 20MG PER DAY
     Route: 048
     Dates: start: 19950101
  2. PROPAFENONE HCL [Suspect]
     Indication: PRODUCT USED FOR UNKNOWN INDICATION
     Dosage: 150MG PER DAY
     Route: 048
     Dates: start: 20100104

REACTIONS (6)
  - ALOPECIA [None]
  - DIZZINESS [None]
  - OROPHARYNGEAL PAIN [None]
  - HYPOTENSION [None]
  - HEADACHE [None]
  - VISION BLURRED [None]
